FAERS Safety Report 11969163 (Version 1)
Quarter: 2016Q1

REPORT INFORMATION
  Report Type: Spontaneous
  Country: US (occurrence: US)
  Receive Date: 20160128
  Receipt Date: 20160128
  Transmission Date: 20160526
  Serious: Yes (Other)
  Sender: FDA-Public Use
  Company Number: PHEH2015US008102

PATIENT
  Sex: Male
  Weight: 57.6 kg

DRUGS (4)
  1. EXELON PATCH [Suspect]
     Active Substance: RIVASTIGMINE
     Indication: DEMENTIA ALZHEIMER^S TYPE
     Dosage: 9.5 MG/24HOURS, 18 MG DAILY RIVASTIGMINE BASE
     Route: 062
     Dates: start: 20130220
  2. EXELON PATCH [Suspect]
     Active Substance: RIVASTIGMINE
     Indication: DEMENTIA
     Dosage: 9.5 MG/24HOURS
     Route: 062
  3. NAMENDA [Concomitant]
     Active Substance: MEMANTINE HYDROCHLORIDE
     Indication: DEMENTIA
     Dosage: 28 MG, QD
     Route: 065
     Dates: start: 201403
  4. OMEPRAZOLE. [Concomitant]
     Active Substance: OMEPRAZOLE
     Indication: GASTROOESOPHAGEAL REFLUX DISEASE
     Dosage: 40 MG, QD
     Route: 065
     Dates: start: 20130920

REACTIONS (3)
  - Product adhesion issue [Not Recovered/Not Resolved]
  - Dementia [Not Recovered/Not Resolved]
  - Abnormal behaviour [Not Recovered/Not Resolved]
